FAERS Safety Report 5744042-2 (Version None)
Quarter: 2008Q2

REPORT INFORMATION
  Report Type: 
  Country: None (occurrence: None)
  Receive Date: 20080516
  Receipt Date: 20080516
  Transmission Date: 20081010
  Serious: Yes (Life-Threatening, Hospitalization, Other)
  Sender: FDA-Public Use
  Company Number: None

PATIENT
  Age: 71 Year
  Sex: Male
  Weight: 129.2752 kg

DRUGS (1)
  1. ACTOS [Suspect]
     Indication: BLOOD GLUCOSE INCREASED
     Dosage: 30MG 1 PO
     Route: 048
     Dates: start: 20051001

REACTIONS (4)
  - GENERALISED OEDEMA [None]
  - MOVEMENT DISORDER [None]
  - TYPE 1 DIABETES MELLITUS [None]
  - WEIGHT INCREASED [None]
